FAERS Safety Report 6972313-0 (Version None)
Quarter: 2010Q3

REPORT INFORMATION
  Report Type: 
  Country: None (occurrence: None)
  Receive Date: 20100824
  Receipt Date: 20100519
  Transmission Date: 20110219
  Serious: No
  Sender: FDA-Public Use
  Company Number: 309331

PATIENT
  Age: 70 Year
  Sex: Female
  Weight: 117.9 kg

DRUGS (3)
  1. VICTOZA [Suspect]
     Indication: TYPE 2 DIABETES MELLITUS
     Dosage: 0.6 MG, QD, SUBCUTANEOUS; 1.2 MG, QD, SUBCUTANEOUS; 1.8 MG, QD, SUBCUTANEUOUS
     Route: 058
     Dates: start: 20100401, end: 20100408
  2. VICTOZA [Suspect]
     Indication: TYPE 2 DIABETES MELLITUS
     Dosage: 0.6 MG, QD, SUBCUTANEOUS; 1.2 MG, QD, SUBCUTANEOUS; 1.8 MG, QD, SUBCUTANEUOUS
     Route: 058
     Dates: start: 20100409, end: 20100416
  3. VICTOZA [Suspect]
     Indication: TYPE 2 DIABETES MELLITUS
     Dosage: 0.6 MG, QD, SUBCUTANEOUS; 1.2 MG, QD, SUBCUTANEOUS; 1.8 MG, QD, SUBCUTANEUOUS
     Route: 058
     Dates: start: 20100416, end: 20100421

REACTIONS (6)
  - ASTHENIA [None]
  - BURNING SENSATION [None]
  - MALAISE [None]
  - RASH GENERALISED [None]
  - SKIN EXFOLIATION [None]
  - TENDERNESS [None]
